FAERS Safety Report 9001821 (Version 2)
Quarter: 2014Q2

REPORT INFORMATION
  Report Type: Report from Study
  Country: BR (occurrence: BR)
  Receive Date: 20130107
  Receipt Date: 20140430
  Transmission Date: 20141212
  Serious: Yes (Hospitalization, Other)
  Sender: FDA-Public Use
  Company Number: BR-ROCHE-642209

PATIENT
  Age: 55 Year
  Sex: Male

DRUGS (3)
  1. MYCOPHENOLATE MOFETIL [Suspect]
     Indication: RENAL TRANSPLANT
     Route: 048
  2. CICLOSPORIN [Suspect]
     Indication: RENAL TRANSPLANT
     Dosage: FREQUENCY REPORTED AS 1 DAY
     Route: 048
     Dates: start: 20070101
  3. PREDNISONE [Suspect]
     Indication: RENAL TRANSPLANT
     Route: 065
     Dates: start: 20080104

REACTIONS (2)
  - Basal cell carcinoma [Recovered/Resolved]
  - Renal artery stenosis [Recovered/Resolved]
